FAERS Safety Report 6903821-6 (Version None)
Quarter: 2010Q3

REPORT INFORMATION
  Report Type: 
  Country: None (occurrence: None)
  Receive Date: 20100804
  Receipt Date: 20081126
  Transmission Date: 20110219
  Serious: No
  Sender: FDA-Public Use
  Company Number: US-PFIZER INC-2008100360

PATIENT
  Sex: Female
  Weight: 111.36 kg

DRUGS (9)
  1. LYRICA [Suspect]
     Indication: CONVULSION
     Dates: start: 20071001
  2. LYRICA [Suspect]
     Indication: LUMBAR RADICULOPATHY
  3. CLOZARIL [Concomitant]
  4. AMBIEN [Concomitant]
  5. ZOLOFT [Concomitant]
  6. PLAQUENIL [Concomitant]
  7. ADVAIR DISKUS 100/50 [Concomitant]
     Indication: ASTHMA
  8. ALBUTEROL [Concomitant]
  9. MONTELUKAST SODIUM [Concomitant]

REACTIONS (4)
  - DYSPHEMIA [None]
  - TREMOR [None]
  - WEIGHT INCREASED [None]
  - WITHDRAWAL SYNDROME [None]
